FAERS Safety Report 25615280 (Version 1)
Quarter: 2025Q3

REPORT INFORMATION
  Report Type: Spontaneous
  Country: BR (occurrence: BR)
  Receive Date: 20250729
  Receipt Date: 20250729
  Transmission Date: 20251020
  Serious: Yes (Hospitalization, Other)
  Sender: UCB
  Company Number: BR-UCBSA-2025045894

PATIENT
  Sex: Male

DRUGS (3)
  1. KEPPRA [Suspect]
     Active Substance: LEVETIRACETAM
     Indication: Seizure
  2. KEPPRA [Suspect]
     Active Substance: LEVETIRACETAM
     Indication: Off label use
  3. KEPPRA [Suspect]
     Active Substance: LEVETIRACETAM

REACTIONS (4)
  - Hospitalisation [Unknown]
  - Seizure [Unknown]
  - Off label use [Unknown]
  - Intentional dose omission [Unknown]
